FAERS Safety Report 5980092-9 (Version None)
Quarter: 2008Q4

REPORT INFORMATION
  Report Type: 
  Country: None (occurrence: None)
  Receive Date: 20081205
  Receipt Date: 20081114
  Transmission Date: 20090506
  Serious: Yes (Hospitalization)
  Sender: FDA-Public Use
  Company Number: IT-AVENTIS-200816432EU

PATIENT
  Age: 21 Year
  Sex: Male

DRUGS (11)
  1. FUROSEMIDE [Suspect]
     Dates: start: 20080715, end: 20080721
  2. FUROSEMIDE [Suspect]
     Dates: start: 20080722, end: 20080814
  3. DESYREL [Suspect]
     Indication: RESTLESSNESS
     Route: 048
     Dates: start: 20080727, end: 20080731
  4. VFEND [Suspect]
     Indication: ASPERGILLOSIS ORAL
     Dosage: DOSE: 3 MG/KG
     Route: 051
     Dates: start: 20080723, end: 20080801
  5. RISPERDAL [Suspect]
     Indication: RESTLESSNESS
     Route: 048
     Dates: start: 20080727, end: 20080731
  6. GASCOOL [Concomitant]
     Dosage: DOSE: UNK
     Dates: start: 20080720, end: 20080721
  7. VENOGLOBULIN [Concomitant]
     Dates: start: 20080722
  8. ALBUMIN (HUMAN) [Concomitant]
  9. RASENAZOLIN [Concomitant]
     Dates: start: 20080731, end: 20080801
  10. SULBACILLIN [Concomitant]
     Dates: start: 20080802, end: 20080814
  11. ROCEPHIN [Concomitant]
     Dates: start: 20080715, end: 20080730

REACTIONS (4)
  - HALLUCINATION [None]
  - RENAL FAILURE [None]
  - RESTLESSNESS [None]
  - SOMNOLENCE [None]
